FAERS Safety Report 18997725 (Version 1)
Quarter: 2021Q1

REPORT INFORMATION
  Report Type: Spontaneous
  Country: US (occurrence: US)
  Receive Date: 20210311
  Receipt Date: 20210311
  Transmission Date: 20210420
  Serious: Yes (Other)
  Sender: FDA-Public Use
  Company Number: None

PATIENT
  Age: 27 Year
  Sex: Male
  Weight: 76 kg

DRUGS (6)
  1. SOFOSBUVIR/VELPATASVIR [Suspect]
     Active Substance: SOFOSBUVIR\VELPATASVIR
     Indication: CHRONIC HEPATITIS C
     Route: 048
     Dates: start: 20210204, end: 20210306
  2. IBUPROFEN 600 MG [Concomitant]
     Active Substance: IBUPROFEN
  3. PSEUDOEPHEDRINE 30 MG [Concomitant]
  4. BUPRENORPHINE/NALOXONE 8?2 MG [Concomitant]
     Active Substance: BUPRENORPHINE\NALOXONE
  5. MUCINEX 600 MG [Concomitant]
  6. TRAZODONE [Concomitant]
     Active Substance: TRAZODONE HYDROCHLORIDE

REACTIONS (1)
  - Swelling face [None]

NARRATIVE: CASE EVENT DATE: 20210306
